FAERS Safety Report 12888122 (Version 11)
Quarter: 2020Q3

REPORT INFORMATION
  Report Type: Other
  Country: GB (occurrence: GB)
  Receive Date: 20161027
  Receipt Date: 20200903
  Transmission Date: 20201102
  Serious: Yes (Life-Threatening, Hospitalization, Disabling)
  Sender: FDA-Public Use
  Company Number: GB-ROCHE-1846324

PATIENT
  Age: 42 Year
  Sex: Female
  Weight: 98 kg

DRUGS (39)
  1. TRASTUZUMAB. [Suspect]
     Active Substance: TRASTUZUMAB
     Route: 042
     Dates: start: 20160808, end: 20160808
  2. PERTUZUMAB. [Suspect]
     Active Substance: PERTUZUMAB
     Dosage: 840MG FIRST DOSE THEN 420MG
     Route: 042
     Dates: start: 20160808, end: 20160830
  3. HYDROCORTISONE. [Concomitant]
     Active Substance: HYDROCORTISONE
     Indication: NEUTROPENIC SEPSIS
  4. FRUSEMIDE [Concomitant]
     Active Substance: FUROSEMIDE
     Indication: ACUTE KIDNEY INJURY
  5. DANAPAROID [Concomitant]
     Active Substance: DANAPAROID
  6. SALBUTAMOL [Concomitant]
     Active Substance: ALBUTEROL
     Indication: PNEUMONIA
  7. PERTUZUMAB. [Suspect]
     Active Substance: PERTUZUMAB
     Indication: BREAST CANCER METASTATIC
     Dosage: LOADING DOSE
     Route: 042
     Dates: start: 20160718
  8. MAGNASPARTATE [Concomitant]
     Indication: BLOOD MAGNESIUM DECREASED
     Route: 065
     Dates: start: 20160908
  9. TINZAPARIN [Concomitant]
     Active Substance: TINZAPARIN
  10. CLOPIDOGREL [Concomitant]
     Active Substance: CLOPIDOGREL BISULFATE
     Indication: PNEUMONIA
  11. GLUCOGEL [Concomitant]
  12. POTASSIUM CHLORIDE. [Concomitant]
     Active Substance: POTASSIUM CHLORIDE
  13. ZOPICLONE [Concomitant]
     Active Substance: ZOPICLONE
  14. CITALOPRAM [Concomitant]
     Active Substance: CITALOPRAM HYDROBROMIDE
     Indication: DEPRESSION
     Route: 048
     Dates: start: 20160921
  15. MORPHINE [Concomitant]
     Active Substance: MORPHINE
  16. TOLTERODINE [Concomitant]
     Active Substance: TOLTERODINE
     Indication: ACUTE KIDNEY INJURY
  17. CYCLIZINE [Concomitant]
     Active Substance: CYCLIZINE
     Indication: NAUSEA
     Dosage: AS NEEDED
     Route: 048
     Dates: start: 20160908
  18. GTN [Concomitant]
     Active Substance: NITROGLYCERIN
  19. DOCETAXEL. [Suspect]
     Active Substance: DOCETAXEL
     Route: 042
     Dates: start: 20160808
  20. DIHYDROCODEINE [Concomitant]
     Active Substance: DIHYDROCODEINE
     Indication: PAIN
     Route: 048
     Dates: start: 20160908
  21. TAUROLOCK [Concomitant]
     Active Substance: TAUROLIDINE
  22. TRANEXAMIC ACID. [Concomitant]
     Active Substance: TRANEXAMIC ACID
  23. TRASTUZUMAB. [Suspect]
     Active Substance: TRASTUZUMAB
     Indication: BREAST CANCER METASTATIC
     Dosage: 798MG LOADING
     Route: 042
     Dates: start: 20160718
  24. MAGNESIUM SULFATE. [Concomitant]
     Active Substance: MAGNESIUM SULFATE
  25. ONDANSETRON [Concomitant]
     Active Substance: ONDANSETRON
     Indication: NAUSEA
     Route: 048
     Dates: start: 20160908
  26. LEVOMEPROMAZINE [Concomitant]
     Active Substance: LEVOMEPROMAZINE
  27. MEROPENEM. [Concomitant]
     Active Substance: MEROPENEM
  28. NOREPINEPHRINE. [Concomitant]
     Active Substance: NOREPINEPHRINE
  29. TINZAPARIN [Concomitant]
     Active Substance: TINZAPARIN
  30. DOCETAXEL. [Suspect]
     Active Substance: DOCETAXEL
     Indication: BREAST CANCER METASTATIC
     Route: 042
     Dates: start: 20160718
  31. DOCETAXEL. [Suspect]
     Active Substance: DOCETAXEL
     Route: 042
     Dates: start: 20160830
  32. LETROZOLE. [Suspect]
     Active Substance: LETROZOLE
     Indication: PRODUCT USED FOR UNKNOWN INDICATION
     Route: 048
     Dates: start: 20170124
  33. LOPERAMIDE [Concomitant]
     Active Substance: LOPERAMIDE
     Indication: DIARRHOEA
     Dosage: UP TO 4 TIMES A DAY IF NEEDED FOR LOOSE
     Route: 048
     Dates: start: 20161230
  34. MAGNESIUM ASPARTATE [Concomitant]
     Active Substance: MAGNESIUM ASPARTATE
  35. OXYNORM [Concomitant]
     Active Substance: OXYCODONE HYDROCHLORIDE
     Indication: PAIN
  36. FLUCLOXACILLIN [Concomitant]
     Active Substance: FLUCLOXACILLIN
  37. TRASTUZUMAB. [Suspect]
     Active Substance: TRASTUZUMAB
     Route: 042
     Dates: start: 20160830, end: 20160830
  38. PARACETAMOL [Concomitant]
     Active Substance: ACETAMINOPHEN
     Indication: PAIN
     Route: 048
     Dates: start: 20160908
  39. CODEINE [Concomitant]
     Active Substance: CODEINE

REACTIONS (11)
  - Abdominal pain [Recovered/Resolved with Sequelae]
  - Rash [Recovered/Resolved]
  - Perforation [Recovering/Resolving]
  - Peritonitis [Recovering/Resolving]
  - Colitis ischaemic [Recovered/Resolved]
  - Colitis [Recovering/Resolving]
  - Neutropenic sepsis [Recovered/Resolved]
  - Pneumonia [Recovered/Resolved]
  - Acute kidney injury [Recovered/Resolved]
  - Vomiting [Recovered/Resolved with Sequelae]
  - Diarrhoea [Recovering/Resolving]

NARRATIVE: CASE EVENT DATE: 20160803
